FAERS Safety Report 18261573 (Version 1)
Quarter: 2020Q3

REPORT INFORMATION
  Report Type: Spontaneous
  Country: HU (occurrence: HU)
  Receive Date: 20200914
  Receipt Date: 20200914
  Transmission Date: 20201103
  Serious: Yes (Hospitalization)
  Sender: FDA-Public Use
  Company Number: NVSC2020HU246937

PATIENT
  Age: 66 Year
  Sex: Female

DRUGS (5)
  1. TEGRETOL XR [Suspect]
     Active Substance: CARBAMAZEPINE
     Indication: MEMORY IMPAIRMENT
     Dosage: 200 MG
     Route: 065
     Dates: start: 2020, end: 20200220
  2. TEGRETOL XR [Suspect]
     Active Substance: CARBAMAZEPINE
     Indication: DEPRESSION
  3. CATAFLAM [Suspect]
     Active Substance: DICLOFENAC POTASSIUM
     Indication: PAIN
     Dosage: 50 MG, PRN
     Route: 005
     Dates: start: 2020
  4. KEPPRA [Concomitant]
     Active Substance: LEVETIRACETAM
     Indication: PRODUCT USED FOR UNKNOWN INDICATION
     Dosage: UNK
     Route: 065
  5. CATAFLAM [Suspect]
     Active Substance: DICLOFENAC POTASSIUM
     Indication: ANALGESIC THERAPY

REACTIONS (3)
  - Seizure [Unknown]
  - Sleep disorder [Unknown]
  - Product dose omission issue [Unknown]

NARRATIVE: CASE EVENT DATE: 20200201
